FAERS Safety Report 5310200-4 (Version None)
Quarter: 2007Q2

REPORT INFORMATION
  Report Type: 
  Country: None (occurrence: None)
  Receive Date: 20070427
  Receipt Date: 20070425
  Transmission Date: 20071010
  Serious: Yes (Death)
  Sender: FDA-Public Use
  Company Number: 2007SE02319

PATIENT
  Sex: Female

DRUGS (1)
  1. AMIAS [Suspect]
     Route: 048

REACTIONS (1)
  - INTENTIONAL OVERDOSE [None]
